FAERS Safety Report 14099859 (Version 2)
Quarter: 2018Q2

REPORT INFORMATION
  Report Type: Spontaneous
  Country: RU (occurrence: RU)
  Receive Date: 20171017
  Receipt Date: 20180418
  Transmission Date: 20180711
  Serious: Yes (Hospitalization)
  Sender: FDA-Public Use
  Company Number: RU-ASTRAZENECA-2017SF05224

PATIENT
  Age: 41 Year
  Sex: Male
  Weight: 90 kg

DRUGS (7)
  1. TROMBO ASS [Concomitant]
     Active Substance: ASPIRIN
  2. ATORIS [Concomitant]
     Active Substance: ATORVASTATIN CALCIUM
  3. OMEPRAZOL [Concomitant]
     Active Substance: OMEPRAZOLE
  4. PREDUCTAL [Concomitant]
     Active Substance: TRIMETAZIDINE DIHYDROCHLORIDE
  5. BRILINTA [Suspect]
     Active Substance: TICAGRELOR
     Indication: MYOCARDIAL INFARCTION
     Route: 048
     Dates: start: 201604
  6. LISINOPRIL. [Concomitant]
     Active Substance: LISINOPRIL
  7. BISOPROLOL [Concomitant]
     Active Substance: BISOPROLOL

REACTIONS (3)
  - Off label use [Not Recovered/Not Resolved]
  - Product prescribing issue [Not Recovered/Not Resolved]
  - Vascular stent occlusion [Recovered/Resolved]
